FAERS Safety Report 7003356-9 (Version None)
Quarter: 2010Q3

REPORT INFORMATION
  Report Type: 
  Country: None (occurrence: None)
  Receive Date: 20100920
  Receipt Date: 20100903
  Transmission Date: 20110219
  Serious: No
  Sender: FDA-Public Use
  Company Number: US-PFIZER INC-2010105333

PATIENT
  Sex: Male
  Weight: 113.38 kg

DRUGS (6)
  1. NEURONTIN [Suspect]
     Indication: PAIN
     Dosage: 600 MG, UNK
     Route: 048
  2. NEURONTIN [Suspect]
     Dosage: UNK
  3. NEURONTIN [Suspect]
     Dosage: 1200 MG, 3X/DAY
     Route: 048
     Dates: start: 20050501
  4. LISINOPRIL [Concomitant]
     Indication: HYPERTENSION
     Dosage: 40 MG, UNK
  5. CLONIDINE [Concomitant]
     Dosage: 5 MG, UNK
  6. PAROXETINE [Concomitant]
     Dosage: UNK

REACTIONS (3)
  - INSOMNIA [None]
  - MALAISE [None]
  - STRESS [None]
